FAERS Safety Report 5206842-7 (Version None)
Quarter: 2006Q4

REPORT INFORMATION
  Report Type: 
  Country: None (occurrence: None)
  Receive Date: 20061026
  Receipt Date: 20060823
  Transmission Date: 20070319
  Serious: No
  Sender: FDA-Public Use
  Company Number: 2006102994

PATIENT
  Age: 63 Year
  Sex: Male
  Weight: 97.977 kg

DRUGS (2)
  1. LYRICA [Suspect]
     Indication: MUSCULOSKELETAL DISCOMFORT
     Dates: start: 20060815, end: 20060820
  2. MOTRIN [Concomitant]

REACTIONS (3)
  - BURNING SENSATION [None]
  - INSOMNIA [None]
  - RASH [None]
